FAERS Safety Report 7060712-0 (Version None)
Quarter: 2010Q4

REPORT INFORMATION
  Report Type: 
  Country: None (occurrence: None)
  Receive Date: 20101025
  Receipt Date: 20101012
  Transmission Date: 20110411
  Serious: Yes (Life-Threatening, Hospitalization)
  Sender: FDA-Public Use
  Company Number: DE-MYLANLABS-2010S1019346

PATIENT
  Age: 27 Year
  Sex: Female

DRUGS (9)
  1. ETOPOSIDE [Suspect]
     Indication: GESTATIONAL TROPHOBLASTIC TUMOUR
     Dosage: ON DAYS 1 AND 2
     Route: 040
  2. METHOTREXATE [Suspect]
     Indication: GESTATIONAL TROPHOBLASTIC TUMOUR
     Dosage: ON DAY 1
     Route: 040
  3. METHOTREXATE [Suspect]
     Dosage: ON DAY 1; ADMINSTERED OVER 12 HOURS
     Route: 041
  4. DACTINOMYCIN [Suspect]
     Indication: GESTATIONAL TROPHOBLASTIC TUMOUR
     Dosage: ON DAYS 1 AND 2
     Route: 040
  5. METHIMAZOLE [Concomitant]
     Indication: HYPERTHYROIDISM
     Dosage: DOSE REDUCED AFTER 10 DAYS
     Route: 065
  6. METHIMAZOLE [Concomitant]
     Dosage: RECEIVED LOWER DOSE FO 45 DAYS
     Route: 065
  7. PROPRANOLOL [Concomitant]
     Indication: HYPERTHYROIDISM
     Dosage: DOSE REDUCED AFTER 10 DAYS
     Route: 065
  8. PROPRANOLOL [Concomitant]
     Route: 065
  9. SODIUM PERCHLORATE [Concomitant]
     Indication: HYPERTHYROIDISM
     Route: 065

REACTIONS (4)
  - BRAIN OEDEMA [None]
  - HAEMOPTYSIS [None]
  - RESPIRATORY FAILURE [None]
  - THROMBOCYTOPENIA [None]
